FAERS Safety Report 10956144 (Version 1)
Quarter: 2015Q1

REPORT INFORMATION
  Report Type: Spontaneous
  Country: US (occurrence: US)
  Receive Date: 20150326
  Receipt Date: 20150326
  Transmission Date: 20150721
  Serious: Yes (Other)
  Sender: FDA-Public Use
  Company Number: US-SA-2015SA037790

PATIENT
  Age: 70 Year
  Sex: Female
  Weight: 40.82 kg

DRUGS (5)
  1. SOLOSTAR [Concomitant]
     Active Substance: DEVICE
     Indication: TYPE 2 DIABETES MELLITUS
     Dates: start: 1986, end: 2013
  2. VICTOZA [Concomitant]
     Active Substance: LIRAGLUTIDE
  3. SOLOSTAR [Concomitant]
     Active Substance: DEVICE
     Indication: TYPE 2 DIABETES MELLITUS
  4. LANTUS SOLOSTAR [Suspect]
     Active Substance: INSULIN GLARGINE
     Indication: TYPE 2 DIABETES MELLITUS
     Dosage: DOSE: 50 UNITS TWICE DAILY DOSE:50 UNIT(S)
     Route: 065
     Dates: start: 1986, end: 2013
  5. LANTUS SOLOSTAR [Suspect]
     Active Substance: INSULIN GLARGINE
     Indication: TYPE 2 DIABETES MELLITUS
     Dosage: DOSE:5 UNIT(S)
     Route: 065

REACTIONS (3)
  - Drug administration error [Unknown]
  - Weight decreased [Unknown]
  - Gastric cancer [Unknown]
